FAERS Safety Report 8545366-6 (Version None)
Quarter: 2012Q3

REPORT INFORMATION
  Report Type: 
  Country: None (occurrence: None)
  Receive Date: 20120727
  Receipt Date: 20120716
  Transmission Date: 20120928
  Serious: Yes (Hospitalization)
  Sender: FDA-Public Use
  Company Number: US-PFIZER INC-2012178783

PATIENT
  Sex: Male
  Weight: 62.5 kg

DRUGS (18)
  1. METFORMIN HCL [Suspect]
     Indication: DIABETES MELLITUS
     Dosage: 500 MG, UNK
     Route: 048
     Dates: start: 20110201
  2. DILAUDID [Concomitant]
     Indication: BACK PAIN
     Dosage: UNK
     Dates: start: 20060815
  3. ACETAMINOPHEN [Concomitant]
     Indication: PAIN
  4. ACETAMINOPHEN [Concomitant]
     Indication: MYALGIA
  5. LACTULOSE [Concomitant]
     Indication: CONSTIPATION
     Dosage: UNK
     Dates: start: 20110615, end: 20111215
  6. PEGASYS [Suspect]
     Indication: HEPATITIS C
     Dosage: 180 UG, WEEKLY
     Route: 058
     Dates: start: 20120618
  7. ACETAMINOPHEN [Concomitant]
     Indication: HEADACHE
     Dosage: 325 MG, UNK
     Dates: start: 20090801
  8. MEGESTROL ACETATE [Concomitant]
     Indication: APPETITE DISORDER
     Dosage: 40 MG, UNK
     Dates: end: 20110115
  9. IBUPROFEN [Suspect]
     Indication: BACK PAIN
  10. KETOCONAZOLE [Concomitant]
     Indication: RASH
     Dosage: UNK
     Dates: start: 20081215
  11. CYMBALTA [Concomitant]
     Indication: DEPRESSION
     Dosage: UNK
     Dates: start: 20070615, end: 20080615
  12. COPEGUS [Suspect]
     Indication: HEPATITIS C
     Dosage: 1000 MG DAILY IN 2 DIVIDED DOSES 300 MG IN THE AM AND 200 MG IN THE PM
     Route: 048
     Dates: start: 20120618, end: 20120704
  13. VX-950 [Concomitant]
     Indication: HEPATITIS C
     Dosage: 1125 MG, 2X/DAY
     Route: 048
     Dates: start: 20120618
  14. ACETAMINOPHEN [Concomitant]
     Indication: BACK PAIN
  15. SENNA ALEXANDRINA [Concomitant]
     Indication: CONSTIPATION
     Dosage: 8.6 MG, UNK
     Dates: start: 20100801
  16. IBUPROFEN [Suspect]
     Indication: HEADACHE
     Dosage: 400 MG, UNK
     Route: 048
     Dates: start: 20090801
  17. METHADONE [Concomitant]
     Indication: BACK PAIN
     Dosage: 10 MG, UNK
     Dates: start: 20100815
  18. COMPAZINE [Concomitant]
     Indication: NAUSEA
     Dosage: 10 MG, UNK
     Route: 048
     Dates: start: 20120626, end: 20120628

REACTIONS (1)
  - RENAL FAILURE [None]
